FAERS Safety Report 4469958-9 (Version None)
Quarter: 2004Q3

REPORT INFORMATION
  Report Type: 
  Country: None (occurrence: None)
  Receive Date: 20040920
  Receipt Date: 20040726
  Transmission Date: 20050211
  Serious: No
  Sender: FDA-Public Use
  Company Number: A-US2004-06981

PATIENT
  Sex: Female

DRUGS (7)
  1. TRACLEER [Suspect]
     Indication: PULMONARY HYPERTENSION
     Dosage: 125 MG, BID, ORAL
     Route: 048
     Dates: start: 20030101
  2. PREDNISONE [Concomitant]
  3. CRESTOR [Concomitant]
  4. NEXIUM [Concomitant]
  5. MOTILIUM [Concomitant]
  6. CYTOXAN [Concomitant]
  7. PAMIDRONATE DISODIUM (PAMIDERONATE DISODIUM) [Concomitant]

REACTIONS (1)
  - AMNESIA [None]
